FAERS Safety Report 4750602-8 (Version None)
Quarter: 2005Q3

REPORT INFORMATION
  Report Type: 
  Country: None (occurrence: None)
  Receive Date: 20050823
  Receipt Date: 20050816
  Transmission Date: 20060218
  Serious: Yes (Disabling)
  Sender: FDA-Public Use
  Company Number: FR-ROCHE-414584

PATIENT
  Age: 9 Year
  Sex: Female

DRUGS (2)
  1. ROCEPHIN [Suspect]
     Indication: ENTEROBACTER INFECTION
     Route: 042
     Dates: start: 19960222
  2. AMIKLIN [Suspect]
     Indication: ENTEROBACTER INFECTION
     Route: 042
     Dates: start: 19960222

REACTIONS (2)
  - DEAFNESS [None]
  - EAR INFECTION [None]
